FAERS Safety Report 13777276 (Version 1)
Quarter: 2017Q3

REPORT INFORMATION
  Report Type: Report from Study
  Country: CA (occurrence: CA)
  Receive Date: 20170721
  Receipt Date: 20170721
  Transmission Date: 20171127
  Serious: Yes (Other)
  Sender: FDA-Public Use
  Company Number: CA-AMGEN-CANSL2017107317

PATIENT
  Age: 71 Year
  Sex: Female

DRUGS (4)
  1. THYROID [Concomitant]
     Active Substance: LEVOTHYROXINE\LIOTHYRONINE
     Dosage: UNK
  2. PROLIA [Suspect]
     Active Substance: DENOSUMAB
     Indication: OSTEOPOROSIS POSTMENOPAUSAL
     Dosage: UNK
     Route: 065
     Dates: start: 20151212
  3. DOMPERIDONE [Concomitant]
     Active Substance: DOMPERIDONE
     Dosage: UNK
  4. PREVACID [Concomitant]
     Active Substance: LANSOPRAZOLE
     Dosage: UNK

REACTIONS (2)
  - Breast cancer [Not Recovered/Not Resolved]
  - Feeding disorder [Not Recovered/Not Resolved]

NARRATIVE: CASE EVENT DATE: 2017
